FAERS Safety Report 25746206 (Version 2)
Quarter: 2025Q3

REPORT INFORMATION
  Report Type: Spontaneous
  Country: EU (occurrence: EU)
  Receive Date: 20250901
  Receipt Date: 20250929
  Transmission Date: 20251021
  Serious: Yes (Other)
  Sender: ALEXION PHARMACEUTICALS
  Company Number: EU-AstraZeneca-CH-00938876A

PATIENT
  Age: 42 Year
  Sex: Female

DRUGS (5)
  1. IMFINZI [Suspect]
     Active Substance: DURVALUMAB
     Indication: Bladder transitional cell carcinoma
     Route: 065
  2. ENFORTUMAB VEDOTIN [Suspect]
     Active Substance: ENFORTUMAB VEDOTIN
     Route: 065
  3. PEMBROLIZUMAB [Suspect]
     Active Substance: PEMBROLIZUMAB
     Route: 065
  4. GEMCITABINE [Suspect]
     Active Substance: GEMCITABINE
     Route: 065
  5. CISPLATIN [Suspect]
     Active Substance: CISPLATIN
     Route: 065

REACTIONS (3)
  - Colitis [Unknown]
  - Pneumonitis [Unknown]
  - Thrombosis [Unknown]
